FAERS Safety Report 5910657-1 (Version None)
Quarter: 2008Q4

REPORT INFORMATION
  Report Type: 
  Country: None (occurrence: None)
  Receive Date: 20081007
  Receipt Date: 20080930
  Transmission Date: 20090506
  Serious: Yes (Life-Threatening, Hospitalization)
  Sender: FDA-Public Use
  Company Number: JP-BAYER-200811130BYL

PATIENT
  Age: 71 Year
  Sex: Male
  Weight: 33 kg

DRUGS (7)
  1. NEXAVAR [Suspect]
     Indication: RENAL CELL CARCINOMA STAGE IV
     Dosage: TOTAL DAILY DOSE: 800 MG  UNIT DOSE: 200 MG
     Route: 048
     Dates: start: 20080508, end: 20080605
  2. LENDORMIN [Concomitant]
     Route: 048
  3. ASVERIN [Concomitant]
     Route: 048
  4. GASTER D [Concomitant]
     Route: 048
  5. DECADRON [Concomitant]
     Indication: TUMOUR ASSOCIATED FEVER
     Route: 048
  6. VOLTAREN SUPPO [Concomitant]
     Route: 054
  7. MAGNESIUM OXIDE [Concomitant]
     Route: 048

REACTIONS (7)
  - ARRHYTHMIA [None]
  - ASPIRATION [None]
  - BLOOD PRESSURE IMMEASURABLE [None]
  - HYPERTENSION [None]
  - PALMAR-PLANTAR ERYTHRODYSAESTHESIA SYNDROME [None]
  - PNEUMONIA [None]
  - STAPHYLOCOCCAL INFECTION [None]
